FAERS Safety Report 14375361 (Version 2)
Quarter: 2018Q1

REPORT INFORMATION
  Report Type: Spontaneous
  Country: US (occurrence: US)
  Receive Date: 20180111
  Receipt Date: 20180130
  Transmission Date: 20180509
  Serious: Yes (Death, Hospitalization)
  Sender: FDA-Public Use
  Company Number: US-GLAXOSMITHKLINE-US2018003360

PATIENT
  Age: 77 Year
  Sex: Female
  Weight: 46 kg

DRUGS (6)
  1. PREDNISONE. [Concomitant]
     Active Substance: PREDNISONE
  2. ASPIRIN. [Concomitant]
     Active Substance: ASPIRIN
  3. VENTOLIN HFA [Suspect]
     Active Substance: ALBUTEROL SULFATE
     Indication: CHRONIC OBSTRUCTIVE PULMONARY DISEASE
     Dosage: 2 PUFF(S), PRN
     Route: 055
  4. CARDIZEM [Concomitant]
     Active Substance: DILTIAZEM HYDROCHLORIDE
  5. SPIRIVA [Concomitant]
     Active Substance: TIOTROPIUM BROMIDE MONOHYDRATE
  6. ADVAIR DISKUS [Suspect]
     Active Substance: FLUTICASONE PROPIONATE\SALMETEROL XINAFOATE
     Indication: CHRONIC OBSTRUCTIVE PULMONARY DISEASE
     Dosage: 1 PUFF(S), BID
     Route: 055

REACTIONS (5)
  - Dyspnoea [Fatal]
  - Product use in unapproved indication [Recovered/Resolved]
  - Drug ineffective [Recovered/Resolved]
  - Chronic obstructive pulmonary disease [Fatal]
  - Disease progression [Unknown]

NARRATIVE: CASE EVENT DATE: 20180104
